FAERS Safety Report 16811198 (Version 1)
Quarter: 2019Q3

REPORT INFORMATION
  Report Type: Spontaneous
  Country: FR (occurrence: FR)
  Receive Date: 20190916
  Receipt Date: 20190916
  Transmission Date: 20191005
  Serious: Yes (Life-Threatening)
  Sender: FDA-Public Use
  Company Number: FR-JNJFOC-20190901874

PATIENT
  Age: 21 Year
  Sex: Female
  Weight: 57 kg

DRUGS (5)
  1. TERALITHE [Concomitant]
     Active Substance: LITHIUM CARBONATE
     Indication: BIPOLAR DISORDER
     Route: 048
  2. RISPERDAL [Suspect]
     Active Substance: RISPERIDONE
     Indication: BIPOLAR DISORDER
     Route: 048
     Dates: start: 20190802, end: 20190813
  3. VALIUM [Concomitant]
     Active Substance: DIAZEPAM
     Indication: AGITATION
  4. THERALENE [Suspect]
     Active Substance: TRIMEPRAZINE
     Indication: BIPOLAR DISORDER
     Route: 048
     Dates: start: 20190802, end: 20190813
  5. LARGACTIL                          /00011901/ [Suspect]
     Active Substance: CHLORPROMAZINE
     Indication: BIPOLAR DISORDER
     Route: 048
     Dates: start: 20190805, end: 20190813

REACTIONS (3)
  - Hepatocellular injury [Recovering/Resolving]
  - Pyrexia [Recovered/Resolved]
  - Prothrombin time ratio decreased [Recovering/Resolving]

NARRATIVE: CASE EVENT DATE: 20190813
